FAERS Safety Report 7551004-1 (Version None)
Quarter: 2011Q2

REPORT INFORMATION
  Report Type: 
  Country: None (occurrence: None)
  Receive Date: 20110616
  Receipt Date: 20110606
  Transmission Date: 20111010
  Serious: Yes (Other)
  Sender: FDA-Public Use
  Company Number: US-MYLANLABS-2011S1011679

PATIENT
  Age: 55 Year
  Sex: Male
  Weight: 81.6 kg

DRUGS (7)
  1. DEXILANT [Suspect]
     Indication: GASTROOESOPHAGEAL REFLUX DISEASE
     Route: 048
     Dates: start: 20110506, end: 20110512
  2. LISINOPRIL [Suspect]
     Indication: HYPERTENSION
     Route: 048
     Dates: end: 20110516
  3. FLUCONAZOLE [Suspect]
     Indication: PROSTATITIS
     Route: 048
     Dates: end: 20110516
  4. DEXILANT [Suspect]
     Route: 048
     Dates: start: 20110514, end: 20110516
  5. DEXILANT [Suspect]
     Indication: BARRETT'S OESOPHAGUS
     Route: 048
     Dates: start: 20110506, end: 20110512
  6. DEXILANT [Suspect]
     Route: 048
     Dates: start: 20110514, end: 20110516
  7. TRIAMTERENE AND HYDROCHLOROTHIAZIDE [Suspect]
     Indication: HYPERTENSION
     Route: 048
     Dates: end: 20110516

REACTIONS (1)
  - TOXIC EPIDERMAL NECROLYSIS [None]
